FAERS Safety Report 8398339-0 (Version None)
Quarter: 2012Q1

REPORT INFORMATION
  Report Type: 
  Country: None (occurrence: None)
  Receive Date: 20120323
  Receipt Date: 20110510
  Transmission Date: 20120608
  Serious: Yes (Hospitalization, Other)
  Sender: FDA-Public Use
  Company Number: 163-21880-10123232

PATIENT
  Age: 84 Year
  Sex: Female

DRUGS (4)
  1. COUMADIN (WARFAIRN SODIUM) [Concomitant]
  2. ANTIBIOTICS (ANTIBIOTICS) [Concomitant]
  3. REVLIMID [Suspect]
     Indication: MULTIPLE MYELOMA
     Dosage: 25 MG, DAILY FOR 21 DAYS EVERY 28 DAYS, PO ; 25 MG, X 14, PO
     Route: 048
     Dates: start: 20110201
  4. REVLIMID [Suspect]
     Indication: MULTIPLE MYELOMA
     Dosage: 25 MG, DAILY FOR 21 DAYS EVERY 28 DAYS, PO ; 25 MG, X 14, PO
     Route: 048
     Dates: start: 20101214

REACTIONS (7)
  - HAEMOGLOBIN DECREASED [None]
  - LACRIMATION INCREASED [None]
  - THROMBOCYTOPENIA [None]
  - HAEMATURIA [None]
  - FALL [None]
  - FATIGUE [None]
  - CONDITION AGGRAVATED [None]
